FAERS Safety Report 8275758 (Version 8)
Quarter: 2013Q3

REPORT INFORMATION
  Report Type: Report from Study
  Country: JP (occurrence: JP)
  Receive Date: 20111205
  Receipt Date: 20130820
  Transmission Date: 20140515
  Serious: Yes (Hospitalization)
  Sender: FDA-Public Use
  Company Number: JP-ELI_LILLY_AND_COMPANY-JP201111007966

PATIENT
  Age: 75 Year
  Sex: Female

DRUGS (3)
  1. TERIPARATIDE [Suspect]
     Dosage: UNK
     Route: 058
     Dates: start: 20111111
  2. TERIPARATIDE [Suspect]
     Dosage: UNK
     Route: 058
     Dates: start: 201203, end: 20130101
  3. INSULIN [Concomitant]
     Route: 058

REACTIONS (7)
  - Compression fracture [Unknown]
  - Decreased appetite [Unknown]
  - Fracture [Unknown]
  - Nausea [Unknown]
  - Asthenia [Not Recovered/Not Resolved]
  - Back pain [Not Recovered/Not Resolved]
  - Incorrect product storage [Recovered/Resolved]
